FAERS Safety Report 9679080 (Version 1)
Quarter: 2013Q4

REPORT INFORMATION
  Report Type: Spontaneous
  Country: US (occurrence: None)
  Receive Date: 20131107
  Receipt Date: 20131107
  Transmission Date: 20140711
  Serious: Yes (Other)
  Sender: FDA-Public Use
  Company Number: 2013GR_BP005875

PATIENT
  Age: 29 Year
  Sex: Male
  Weight: 72 kg

DRUGS (2)
  1. FINASTERIDE (FINASTERIDE) [Suspect]
     Indication: ALOPECIA
     Route: 048
  2. FINASTERIDE (FINASTERIDE) [Suspect]
     Indication: OFF LABEL USE
     Route: 048

REACTIONS (5)
  - Genital hypoaesthesia [None]
  - Genital paraesthesia [None]
  - Depression [None]
  - Loss of libido [None]
  - Off label use [None]
